FAERS Safety Report 17685522 (Version 1)
Quarter: 2020Q2

REPORT INFORMATION
  Report Type: Spontaneous
  Country: US (occurrence: US)
  Receive Date: 20200420
  Receipt Date: 20200420
  Transmission Date: 20200714
  Serious: Yes (Other)
  Sender: FDA-Public Use
  Company Number: None

PATIENT
  Age: 53 Year
  Sex: Female
  Weight: 65.25 kg

DRUGS (9)
  1. MIRTAAPINE [Concomitant]
  2. RIATRIPTAN [Concomitant]
  3. ZONISAMIDE. [Concomitant]
     Active Substance: ZONISAMIDE
  4. NURTEC ODT [Suspect]
     Active Substance: RIMEGEPANT SULFATE
     Indication: HEADACHE
     Dosage: OTHER FREQUENCY:ONLY 1 IN 24 HOURS;?
     Route: 048
     Dates: start: 20200415, end: 20200417
  5. MODAFINIL. [Concomitant]
     Active Substance: MODAFINIL
  6. SERTRALINE [Concomitant]
     Active Substance: SERTRALINE HYDROCHLORIDE
  7. ZOFRAN [Concomitant]
     Active Substance: ONDANSETRON HYDROCHLORIDE
  8. UBREVLY [Concomitant]
  9. CALCIUM/MAGNESIUM/ZINC W/D3 [Concomitant]

REACTIONS (5)
  - Blister [None]
  - Drug hypersensitivity [None]
  - Rash [None]
  - Swelling [None]
  - Urticaria [None]

NARRATIVE: CASE EVENT DATE: 20200418
